FAERS Safety Report 4621656-4 (Version None)
Quarter: 2005Q1

REPORT INFORMATION
  Report Type: 
  Country: None (occurrence: None)
  Receive Date: 20050329
  Receipt Date: 20050318
  Transmission Date: 20050727
  Serious: Yes (Hospitalization, Other)
  Sender: FDA-Public Use
  Company Number: KII-2005-0015550

PATIENT
  Age: 34 Year
  Sex: Female

DRUGS (6)
  1. MORPHINE SULFATE [Suspect]
     Dosage: ORAL
     Route: 048
  2. MUSCLE RELAXANTS [Suspect]
     Dosage: ORAL
     Route: 048
  3. ACE INHIBITOR NOS [Suspect]
     Dosage: ORAL
     Route: 048
  4. SSRI [Suspect]
     Dosage: ORAL
     Route: 048
  5. SERUMLIPIDREDUCING AGENTS [Suspect]
     Dosage: ORAL
     Route: 048
  6. IBUPROFEN [Suspect]
     Dosage: ORAL
     Route: 048

REACTIONS (10)
  - ALANINE AMINOTRANSFERASE INCREASED [None]
  - ASPARTATE AMINOTRANSFERASE INCREASED [None]
  - BODY TEMPERATURE DECREASED [None]
  - DIALYSIS [None]
  - HEART RATE INCREASED [None]
  - HYPOTENSION [None]
  - MULTIPLE DRUG OVERDOSE [None]
  - RENAL FAILURE [None]
  - RHABDOMYOLYSIS [None]
  - SINUS TACHYCARDIA [None]
